FAERS Safety Report 9421794 (Version 2)
Quarter: 2014Q1

REPORT INFORMATION
  Report Type: Report from Study
  Country: TW (occurrence: TW)
  Receive Date: 20130726
  Receipt Date: 20140114
  Transmission Date: 20141002
  Serious: Yes (Hospitalization)
  Sender: FDA-Public Use
  Company Number: TW-SHIRE-ALL1-2013-05007

PATIENT
  Age: 17 Year
  Sex: Male
  Weight: 57.5 kg

DRUGS (5)
  1. IDURSULFASE [Suspect]
     Indication: MUCOPOLYSACCHARIDOSIS II
     Dosage: 30 MG, UNKNOWN
     Route: 041
     Dates: start: 20110821
  2. IDURSULFASE [Suspect]
     Dosage: 24 MG, UNKNOWN
     Route: 041
     Dates: start: 20100730, end: 20110820
  3. IDURSULFASE [Suspect]
     Dosage: 18 MG, UNKNOWN
     Route: 041
     Dates: start: 20070314, end: 20100729
  4. HYDROXYZINE PAMOATE [Concomitant]
     Indication: PREMEDICATION
     Dosage: 25 MG, AS REQ^D
     Route: 048
     Dates: start: 20070314
  5. CETIRIZINE HYDROCHLORIDE [Concomitant]
     Indication: ANTIALLERGIC THERAPY
     Dosage: 10 MG, AS REQ^D
     Route: 048

REACTIONS (1)
  - Upper respiratory tract infection [Recovered/Resolved]
